FAERS Safety Report 13563064 (Version 1)
Quarter: 2017Q2

REPORT INFORMATION
  Report Type: Spontaneous
  Country: US (occurrence: US)
  Receive Date: 20170518
  Receipt Date: 20170518
  Transmission Date: 20170830
  Serious: No
  Sender: FDA-Public Use
  Company Number: None

PATIENT
  Age: 39 Year
  Sex: Female

DRUGS (1)
  1. REVLIMID [Suspect]
     Active Substance: LENALIDOMIDE
     Indication: MYELODYSPLASTIC SYNDROME
     Dosage: 10 MG DAILY X21D/28D ORAL 2 CYCLES
     Route: 048

REACTIONS (4)
  - Drug intolerance [None]
  - Stomatitis [None]
  - Laboratory test abnormal [None]
  - Perineal abscess [None]

NARRATIVE: CASE EVENT DATE: 20120719
